FAERS Safety Report 7669117-2 (Version None)
Quarter: 2011Q3

REPORT INFORMATION
  Report Type: 
  Country: None (occurrence: None)
  Receive Date: 20110808
  Receipt Date: 20110728
  Transmission Date: 20111222
  Serious: No
  Sender: FDA-Public Use
  Company Number: US-ROXANE LABORATORIES, INC.-2011-RO-01091RO

PATIENT
  Sex: Male

DRUGS (5)
  1. COUMADIN [Concomitant]
  2. OXYCONTIN [Concomitant]
     Indication: METASTATIC PAIN
  3. ZOLPIDEM [Suspect]
     Indication: INSOMNIA
     Dosage: 10 MG
     Route: 048
  4. ZOLPIDEM [Suspect]
     Dosage: 5 MG
     Route: 048
  5. PERCOCET [Concomitant]
     Indication: METASTATIC PAIN

REACTIONS (4)
  - MYALGIA [None]
  - HEADACHE [None]
  - BONE PAIN [None]
  - DIZZINESS [None]
